FAERS Safety Report 5316205-1 (Version None)
Quarter: 2007Q2

REPORT INFORMATION
  Report Type: 
  Country: None (occurrence: None)
  Receive Date: 20070503
  Receipt Date: 20070502
  Transmission Date: 20071010
  Serious: Yes (Other)
  Sender: FDA-Public Use
  Company Number: GR-ROXANE LABORATORIES, INC-2007-DE-02656GD

PATIENT
  Age: 23 Year
  Sex: Female

DRUGS (2)
  1. SERTRALINE [Suspect]
     Indication: DEPRESSION
  2. AMISULPRIDE [Suspect]
     Indication: SCHIZOPHRENIA, UNDIFFERENTIATED TYPE

REACTIONS (3)
  - AMENORRHOEA [None]
  - DRUG INTERACTION [None]
  - HYPERPROLACTINAEMIA [None]
